FAERS Safety Report 23711143 (Version 1)
Quarter: 2024Q2

REPORT INFORMATION
  Report Type: Spontaneous
  Country: IL (occurrence: IL)
  Receive Date: 20240405
  Receipt Date: 20240405
  Transmission Date: 20240715
  Serious: Yes (Other)
  Sender: FDA-Public Use
  Company Number: IL-STRIDES ARCOLAB LIMITED-2024SP003966

PATIENT
  Age: 12 Year
  Sex: Male

DRUGS (2)
  1. METHOTREXATE [Suspect]
     Active Substance: METHOTREXATE
     Indication: Sympathetic ophthalmia
     Dosage: UNK
     Route: 065
  2. PREDNISONE [Concomitant]
     Active Substance: PREDNISONE
     Indication: Sympathetic ophthalmia
     Dosage: UNK
     Route: 065

REACTIONS (3)
  - Sympathetic ophthalmia [Recovered/Resolved]
  - Rebound effect [Recovered/Resolved]
  - Off label use [Unknown]
